FAERS Safety Report 24900657 (Version 8)
Quarter: 2025Q3

REPORT INFORMATION
  Report Type: Report from Study
  Country: CA (occurrence: CA)
  Receive Date: 20250129
  Receipt Date: 20250915
  Transmission Date: 20251021
  Serious: Yes (Other)
  Sender: AMGEN
  Company Number: CA-002147023-NVSC2024CA241970

PATIENT
  Age: 47 Year
  Sex: Female

DRUGS (7)
  1. AIMOVIG [Suspect]
     Active Substance: ERENUMAB-AOOE
     Indication: Migraine
     Route: 065
     Dates: start: 20181213
  2. AIMOVIG [Suspect]
     Active Substance: ERENUMAB-AOOE
     Dosage: 2 DOSAGE FORM, QMO, 70MG AUTOINJECTOR BUT USES TWO INJECTIONS PER MONTH
     Route: 065
  3. AIMOVIG [Suspect]
     Active Substance: ERENUMAB-AOOE
     Dosage: 140 MG, QMO
     Route: 065
  4. AIMOVIG [Suspect]
     Active Substance: ERENUMAB-AOOE
     Route: 065
  5. AIMOVIG [Suspect]
     Active Substance: ERENUMAB-AOOE
     Route: 065
     Dates: start: 20250213
  6. AIMOVIG [Suspect]
     Active Substance: ERENUMAB-AOOE
     Route: 065
     Dates: start: 20250909
  7. OCTREOTIDE [Suspect]
     Active Substance: OCTREOTIDE
     Indication: Product used for unknown indication
     Route: 065

REACTIONS (15)
  - Haematemesis [Unknown]
  - Upper gastrointestinal haemorrhage [Unknown]
  - Pancreatic carcinoma [Unknown]
  - Recurrent cancer [Unknown]
  - Migraine [Recovered/Resolved]
  - Therapeutic response unexpected [Unknown]
  - Drug intolerance [Unknown]
  - Adverse drug reaction [Unknown]
  - Wheezing [Unknown]
  - Flushing [Unknown]
  - Cardiac disorder [Unknown]
  - Vomiting [Unknown]
  - Radiation injury [Not Recovered/Not Resolved]
  - Ulcer [Unknown]
  - Impaired healing [Unknown]
